FAERS Safety Report 4687040-2 (Version None)
Quarter: 2005Q2

REPORT INFORMATION
  Report Type: 
  Country: None (occurrence: None)
  Receive Date: 20050608
  Receipt Date: 20050525
  Transmission Date: 20051028
  Serious: Yes (Hospitalization)
  Sender: FDA-Public Use
  Company Number: 8010739

PATIENT
  Sex: Male

DRUGS (3)
  1. KEPPRA [Suspect]
     Indication: EPILEPSY
     Dosage: PO
     Route: 048
     Dates: start: 20050101
  2. EPITOMAX [Concomitant]
  3. ANTI HYPERTENSIVE [Concomitant]

REACTIONS (3)
  - BLOOD PRESSURE FLUCTUATION [None]
  - BLOOD PRESSURE INCREASED [None]
  - MALAISE [None]
